FAERS Safety Report 14760702 (Version 1)
Quarter: 2018Q2

REPORT INFORMATION
  Report Type: Report from Study
  Country: US (occurrence: US)
  Receive Date: 20180414
  Receipt Date: 20180414
  Transmission Date: 20180711
  Serious: Yes (Death, Hospitalization)
  Sender: FDA-Public Use
  Company Number: US-JNJFOC-20180407412

PATIENT
  Age: 74 Year
  Sex: Female

DRUGS (3)
  1. ALPRAZOLAM. [Suspect]
     Active Substance: ALPRAZOLAM
     Indication: PRODUCT USED FOR UNKNOWN INDICATION
     Route: 048
  2. TYLENOL ARTHRITIS PAIN [Suspect]
     Active Substance: ACETAMINOPHEN
     Route: 048
  3. TYLENOL ARTHRITIS PAIN [Suspect]
     Active Substance: ACETAMINOPHEN
     Indication: PRODUCT USED FOR UNKNOWN INDICATION
     Route: 048

REACTIONS (13)
  - Transaminases increased [Fatal]
  - Blood bilirubin increased [Fatal]
  - Blood sodium decreased [Fatal]
  - Agitation [Fatal]
  - Blood bicarbonate decreased [Fatal]
  - International normalised ratio increased [Fatal]
  - Ventricular tachycardia [Fatal]
  - Overdose [Fatal]
  - Dysarthria [Fatal]
  - Blood urea increased [Fatal]
  - Somnolence [Fatal]
  - Blood creatinine increased [Fatal]
  - Completed suicide [Fatal]
